FAERS Safety Report 7385583-4 (Version None)
Quarter: 2011Q1

REPORT INFORMATION
  Report Type: 
  Country: None (occurrence: None)
  Receive Date: 20110331
  Receipt Date: 20110317
  Transmission Date: 20110831
  Serious: Yes (Hospitalization)
  Sender: FDA-Public Use
  Company Number: US-BIOGENIDEC-2011BI008293

PATIENT
  Age: 53 Year
  Sex: Female

DRUGS (1)
  1. TYSABRI [Suspect]
     Indication: MULTIPLE SCLEROSIS
     Route: 042
     Dates: start: 20100121

REACTIONS (8)
  - FATIGUE [None]
  - HYPOAESTHESIA [None]
  - PNEUMONIA [None]
  - PHARYNGITIS [None]
  - SINUSITIS [None]
  - INFECTION [None]
  - AMNESIA [None]
  - FACIAL PARESIS [None]
